FAERS Safety Report 11781171 (Version 2)
Quarter: 2016Q1

REPORT INFORMATION
  Report Type: Spontaneous
  Country: US (occurrence: US)
  Receive Date: 20151126
  Receipt Date: 20160115
  Transmission Date: 20160525
  Serious: Yes (Death)
  Sender: FDA-Public Use
  Company Number: US-PFIZER INC-2015366323

PATIENT
  Age: 48 Year
  Sex: Female

DRUGS (3)
  1. SYNTHROID [Concomitant]
     Active Substance: LEVOTHYROXINE SODIUM
     Dosage: UNK
  2. XALKORI [Suspect]
     Active Substance: CRIZOTINIB
     Indication: LUNG NEOPLASM MALIGNANT
     Dosage: 250 MG, 2X/DAY
     Route: 048
  3. EFFEXOR [Concomitant]
     Active Substance: VENLAFAXINE HYDROCHLORIDE
     Dosage: UNK

REACTIONS (5)
  - Lung neoplasm malignant [Fatal]
  - Sinusitis [Unknown]
  - Disease progression [Fatal]
  - Headache [Unknown]
  - Fatigue [Unknown]
